FAERS Safety Report 18295639 (Version 1)
Quarter: 2020Q3

REPORT INFORMATION
  Report Type: Spontaneous
  Country: US (occurrence: US)
  Receive Date: 20200922
  Receipt Date: 20200922
  Transmission Date: 20201103
  Serious: No
  Sender: FDA-Public Use
  Company Number: US-AMARIN PHARMA, INC.-2020AMR000180

PATIENT
  Age: 58 Year
  Sex: Male
  Weight: 86.26 kg

DRUGS (5)
  1. HCG [Concomitant]
     Active Substance: GONADOTROPHIN, CHORIONIC
     Indication: BLOOD TESTOSTERONE DECREASED
     Route: 048
     Dates: start: 2019
  2. LOVASTATIN. [Concomitant]
     Active Substance: LOVASTATIN
     Indication: BLOOD CHOLESTEROL INCREASED
  3. VASCEPA [Suspect]
     Active Substance: ICOSAPENT ETHYL
     Indication: GLUCOSE TOLERANCE IMPAIRED
     Route: 048
     Dates: start: 202002
  4. TAMSULOSIN [Concomitant]
     Active Substance: TAMSULOSIN
     Indication: PROSTATOMEGALY
  5. TESTOSTERONE. [Concomitant]
     Active Substance: TESTOSTERONE
     Indication: BLOOD TESTOSTERONE DECREASED
     Dates: start: 2019

REACTIONS (3)
  - Off label use [Unknown]
  - Eructation [Unknown]
  - Product odour abnormal [Unknown]

NARRATIVE: CASE EVENT DATE: 202002
